FAERS Safety Report 20784949 (Version 1)
Quarter: 2022Q2

REPORT INFORMATION
  Report Type: Spontaneous
  Country: US (occurrence: None)
  Receive Date: 20220503
  Receipt Date: 20220503
  Transmission Date: 20220721
  Serious: No
  Sender: FDA-Public Use
  Company Number: None

PATIENT

DRUGS (1)
  1. BENLYSTA [Suspect]
     Active Substance: BELIMUMAB
     Indication: Systemic lupus erythematosus
     Dosage: FREQUENCY : WEEKLY;?
     Route: 058
     Dates: start: 20220126

REACTIONS (7)
  - Depression [None]
  - Chest pain [None]
  - Anxiety [None]
  - Palpitations [None]
  - Nausea [None]
  - Dizziness [None]
  - Feeling abnormal [None]
